FAERS Safety Report 4449541-1 (Version None)
Quarter: 2004Q3

REPORT INFORMATION
  Report Type: 
  Country: None (occurrence: None)
  Receive Date: 20040914
  Receipt Date: 20040816
  Transmission Date: 20050211
  Serious: Yes (Hospitalization, Other)
  Sender: FDA-Public Use
  Company Number: PHEH2004US08932

PATIENT
  Sex: Male

DRUGS (1)
  1. ELIDEL [Suspect]
     Route: 061

REACTIONS (7)
  - BLOOD PRESSURE INCREASED [None]
  - CELLULITIS [None]
  - DERMATITIS CONTACT [None]
  - ERYTHEMA [None]
  - OEDEMA [None]
  - PAIN [None]
  - PRURITUS [None]
